FAERS Safety Report 10514905 (Version 2)
Quarter: 2014Q4

REPORT INFORMATION
  Report Type: Report from Study
  Country: US (occurrence: US)
  Receive Date: 20141013
  Receipt Date: 20141105
  Transmission Date: 20150528
  Serious: Yes (Death)
  Sender: FDA-Public Use
  Company Number: US-ACTELION-A-NJ2014-106303

PATIENT
  Age: 41 Year
  Sex: Male

DRUGS (6)
  1. COZAAR [Concomitant]
     Active Substance: LOSARTAN POTASSIUM
  2. SOTALOL. [Concomitant]
     Active Substance: SOTALOL
  3. COUMADIN [Concomitant]
     Active Substance: WARFARIN SODIUM
  4. MACITENTAN [Suspect]
     Active Substance: MACITENTAN
     Indication: PULMONARY HYPERTENSION
     Dosage: 10 MG, QD
     Route: 048
     Dates: start: 20140408
  5. DIGOXIN. [Concomitant]
     Active Substance: DIGOXIN
  6. FUROSEMIDE. [Concomitant]
     Active Substance: FUROSEMIDE

REACTIONS (3)
  - Cardiac disorder [Fatal]
  - Liver disorder [Fatal]
  - Intracranial aneurysm [Fatal]

NARRATIVE: CASE EVENT DATE: 20140711
